FAERS Safety Report 17360415 (Version 1)
Quarter: 2020Q1

REPORT INFORMATION
  Report Type: Spontaneous
  Country: GB (occurrence: GB)
  Receive Date: 20200203
  Receipt Date: 20200203
  Transmission Date: 20200409
  Serious: Yes (Death, Other)
  Sender: FDA-Public Use
  Company Number: NVSC2020GB025963

PATIENT
  Sex: Male
  Weight: 1.98 kg

DRUGS (1)
  1. METFORMIN [Suspect]
     Active Substance: METFORMIN HYDROCHLORIDE
     Indication: FOETAL EXPOSURE DURING PREGNANCY
     Dosage: MATERNAL DOSE: 500 MG QD (STARTED AT 28 WEEKS)
     Route: 064

REACTIONS (3)
  - Foetal growth restriction [Fatal]
  - Oesophageal atresia [Fatal]
  - Tracheo-oesophageal fistula [Fatal]
